FAERS Safety Report 9391454 (Version 4)
Quarter: 2014Q1

REPORT INFORMATION
  Report Type: Spontaneous
  Country: US (occurrence: US)
  Receive Date: 20130709
  Receipt Date: 20140218
  Transmission Date: 20141002
  Serious: Yes (Hospitalization)
  Sender: FDA-Public Use
  Company Number: US-B.I. PHARMACEUTICALS,INC./RIDGEFIELD-2013-BI-19640BP

PATIENT
  Age: 72 Year
  Sex: Female

DRUGS (21)
  1. SPIRIVA [Suspect]
     Indication: CHRONIC OBSTRUCTIVE PULMONARY DISEASE
     Dosage: 18 MCG
     Route: 055
     Dates: start: 2004
  2. LEVOTHYROXINE [Concomitant]
     Indication: THYROID DISORDER
     Dosage: 0.112 MCG
     Route: 048
  3. LEVOTHYROXINE [Concomitant]
     Indication: HYPOTHYROIDISM
     Dosage: 125 MCG
     Route: 048
  4. GABAPENTIN [Concomitant]
     Indication: MIGRAINE
     Dosage: 1200 MG
     Route: 048
  5. GABAPENTIN [Concomitant]
     Dosage: 400 MG
     Route: 048
  6. WARFARIN [Concomitant]
     Indication: ANTICOAGULANT THERAPY
     Dosage: 5 MG
     Route: 048
  7. PROMETHAZINE [Concomitant]
     Indication: NAUSEA
     Route: 048
  8. LIOTHYRONINE [Concomitant]
     Indication: HYPOTHYROIDISM
     Dosage: 5 MCG
     Route: 048
  9. ASA [Concomitant]
     Indication: CEREBROVASCULAR ACCIDENT PROPHYLAXIS
     Dosage: 81 MG
     Route: 048
  10. AMIODARONE [Concomitant]
     Indication: ATRIAL FIBRILLATION
     Dosage: 81 MG
     Route: 048
  11. ELIQUIS [Concomitant]
     Indication: ATRIAL FIBRILLATION
     Dosage: 10 MG
     Route: 048
  12. METAXALONE [Concomitant]
     Indication: NECK PAIN
     Dosage: PRN
     Route: 048
  13. METAXALONE [Concomitant]
     Indication: BACK PAIN
  14. METAXALONE [Concomitant]
     Indication: MUSCULOSKELETAL PAIN
  15. AREDS #2 [Concomitant]
     Indication: VITAMIN SUPPLEMENTATION
     Dosage: PRN
     Route: 048
  16. PATANASE [Concomitant]
     Indication: NASAL SEPTUM DEVIATION
     Dosage: 665 MCG
     Route: 045
  17. B-12 [Concomitant]
     Dosage: 500 MG
     Route: 048
  18. D 3 [Concomitant]
     Dosage: 2000 U
     Route: 048
  19. PROAIR [Concomitant]
     Route: 055
  20. FISH OIL [Concomitant]
     Route: 048
  21. POLYETHYLENE GLYCOL 3350 [Concomitant]
     Route: 048

REACTIONS (8)
  - Cardiac disorder [Recovered/Resolved]
  - Dyspnoea [Recovered/Resolved]
  - Sciatica [Not Recovered/Not Resolved]
  - Cataract [Recovered/Resolved]
  - Cataract [Recovered/Resolved]
  - Cataract [Recovered/Resolved]
  - Product quality issue [Unknown]
  - Product quality issue [Unknown]
